FAERS Safety Report 6788270-6 (Version None)
Quarter: 2010Q2

REPORT INFORMATION
  Report Type: 
  Country: None (occurrence: None)
  Receive Date: 20100623
  Receipt Date: 20080407
  Transmission Date: 20101027
  Serious: No
  Sender: FDA-Public Use
  Company Number: US-PFIZER INC-2008010720

PATIENT

DRUGS (1)
  1. PEGVISOMANT [Suspect]

REACTIONS (2)
  - DRUG INEFFECTIVE [None]
  - INSULIN-LIKE GROWTH FACTOR INCREASED [None]
